FAERS Safety Report 4453303-9 (Version None)
Quarter: 2004Q3

REPORT INFORMATION
  Report Type: 
  Country: None (occurrence: None)
  Receive Date: 20040901
  Receipt Date: 20040527
  Transmission Date: 20050211
  Serious: Yes (Other)
  Sender: FDA-Public Use
  Company Number: US078278

PATIENT
  Age: 64 Year
  Sex: Female

DRUGS (8)
  1. ENBREL [Suspect]
     Indication: RHEUMATOID ARTHRITIS
     Dosage: 25 MG, 2 IN 1 WEEKS, SC
     Route: 058
     Dates: start: 19981201, end: 20031201
  2. TRAZODONE HCL [Concomitant]
  3. VALDECOXIB [Concomitant]
  4. METOPROLOL TARTRATE [Concomitant]
  5. FOLIC ACID [Concomitant]
  6. CONJUGATED ESTROGEN [Concomitant]
  7. VENLAFAXINE HCL [Concomitant]
  8. LOSARTAN POTASSIUM [Concomitant]

REACTIONS (1)
  - NON-HODGKIN'S LYMPHOMA STAGE II [None]
